FAERS Safety Report 15133510 (Version 7)
Quarter: 2019Q4

REPORT INFORMATION
  Report Type: Spontaneous
  Country: US (occurrence: US)
  Receive Date: 20180712
  Receipt Date: 20191219
  Transmission Date: 20200122
  Serious: Yes (Other)
  Sender: FDA-Public Use
  Company Number: US-PFIZER INC-2018280304

PATIENT
  Age: 61 Year
  Sex: Female

DRUGS (4)
  1. XELJANZ XR [Suspect]
     Active Substance: TOFACITINIB CITRATE
     Dosage: 11 MG, 1X/DAY
     Route: 048
     Dates: start: 201809
  2. XELJANZ XR [Suspect]
     Active Substance: TOFACITINIB CITRATE
     Indication: RHEUMATOID ARTHRITIS
     Dosage: 11 MG, DAILY
     Route: 048
     Dates: start: 20180614, end: 201806
  3. ESTRADIOL TRANSDERMAL SYSTEM [Concomitant]
     Active Substance: ESTRADIOL
     Dosage: UNK
     Route: 062
  4. RASUVO [Concomitant]
     Active Substance: METHOTREXATE SODIUM
     Dosage: UNK

REACTIONS (15)
  - Intentional product misuse [Unknown]
  - Headache [Recovering/Resolving]
  - Neck pain [Unknown]
  - Rheumatoid arthritis [Unknown]
  - Nausea [Unknown]
  - Night sweats [Unknown]
  - Peripheral coldness [Unknown]
  - Fatigue [Recovering/Resolving]
  - Disturbance in attention [Unknown]
  - Sensitivity to weather change [Unknown]
  - Treatment failure [Unknown]
  - Pain in extremity [Unknown]
  - Swelling [Unknown]
  - Drug ineffective [Unknown]
  - Hot flush [Recovering/Resolving]

NARRATIVE: CASE EVENT DATE: 2018
